FAERS Safety Report 9438056 (Version 1)
Quarter: 2013Q3

REPORT INFORMATION
  Report Type: Spontaneous
  Country: US (occurrence: US)
  Receive Date: 20130802
  Receipt Date: 20130802
  Transmission Date: 20140515
  Serious: No
  Sender: FDA-Public Use
  Company Number: US-BRISTOL-MYERS SQUIBB COMPANY-16752768

PATIENT
  Sex: Male

DRUGS (1)
  1. COUMADIN [Suspect]
     Dosage: DOSE REDUCED TO 2.5MG DAILY,AND LOADING DOSE OF 7.5MG ON 30JUN12,+ 5MG DAILY STARTING 05JUL12

REACTIONS (2)
  - International normalised ratio increased [Unknown]
  - Blood urine present [Unknown]
